FAERS Safety Report 5906057-0 (Version None)
Quarter: 2008Q4

REPORT INFORMATION
  Report Type: 
  Country: None (occurrence: None)
  Receive Date: 20081002
  Receipt Date: 20080918
  Transmission Date: 20090506
  Serious: Yes (Hospitalization)
  Sender: FDA-Public Use
  Company Number: DE-ELI_LILLY_AND_COMPANY-DE200808000006

PATIENT
  Sex: Male
  Weight: 90 kg

DRUGS (3)
  1. CYMBALTA [Suspect]
     Indication: DEPRESSION
     Dosage: 60 MG, DAILY (1/D)
     Route: 048
     Dates: start: 20080625, end: 20080731
  2. SORTIS [Concomitant]
     Indication: HYPERLIPIDAEMIA
     Dosage: 40 MG, DAILY (1/D)
     Route: 048
     Dates: start: 20080625, end: 20080729
  3. HYDROCHLOROTHIAZIDE W/RAMIPRIL [Concomitant]
     Dosage: 5 MG RAMIPRIL AND 25 MG HYDROCHLOROTHIAZIDE, EACH MORNING
     Route: 065

REACTIONS (13)
  - BLOOD CHOLESTEROL INCREASED [None]
  - BLOOD URIC ACID INCREASED [None]
  - EMPHYSEMA [None]
  - FLATULENCE [None]
  - HEPATIC STEATOSIS [None]
  - HEPATOSPLENOMEGALY [None]
  - HYPERHIDROSIS [None]
  - KYPHOSIS [None]
  - LIVER FUNCTION TEST ABNORMAL [None]
  - MALAISE [None]
  - NAUSEA [None]
  - RESTLESSNESS [None]
  - SINUS TACHYCARDIA [None]
